FAERS Safety Report 5247956-5 (Version None)
Quarter: 2007Q1

REPORT INFORMATION
  Report Type: 
  Country: None (occurrence: None)
  Receive Date: 20061201
  Receipt Date: 20060815
  Transmission Date: 20070707
  Serious: No
  Sender: FDA-Public Use
  Company Number: 2006PV019495

PATIENT
  Age: 52 Year
  Sex: Female
  Weight: 88.905 kg

DRUGS (1)
  1. BYETTA [Suspect]
     Indication: METABOLIC SYNDROME
     Dosage: 10 MCG; BID; SC
     Route: 058
     Dates: start: 20060401

REACTIONS (1)
  - WEIGHT DECREASED [None]
